FAERS Safety Report 6843727-4 (Version None)
Quarter: 2010Q3

REPORT INFORMATION
  Report Type: 
  Country: None (occurrence: None)
  Receive Date: 20100714
  Receipt Date: 20100714
  Transmission Date: 20110219
  Serious: Yes (Life-Threatening)
  Sender: FDA-Public Use
  Company Number: None

PATIENT
  Age: 69 Year
  Sex: Female
  Weight: 70.3075 kg

DRUGS (1)
  1. ADVAIR DISKUS 500/50 [Suspect]
     Indication: CHRONIC OBSTRUCTIVE PULMONARY DISEASE
     Dosage: 1 PUFF 2X/DAY MOUTH
     Route: 048

REACTIONS (3)
  - DEVICE MALFUNCTION [None]
  - DYSPNOEA [None]
  - INCORRECT DOSE ADMINISTERED [None]
